FAERS Safety Report 4922262-4 (Version None)
Quarter: 2006Q1

REPORT INFORMATION
  Report Type: 
  Country: None (occurrence: None)
  Receive Date: 20060224
  Receipt Date: 20050218
  Transmission Date: 20060701
  Serious: Yes (Hospitalization)
  Sender: FDA-Public Use
  Company Number: US-MERCK-0502USA02872

PATIENT
  Age: 42 Year
  Sex: Male
  Weight: 118 kg

DRUGS (5)
  1. VIOXX [Suspect]
     Route: 048
     Dates: start: 20030801, end: 20040101
  2. ULTRACET [Concomitant]
     Route: 065
  3. MOBIC [Concomitant]
     Route: 065
  4. SKELAXIN [Concomitant]
     Route: 065
  5. LIDODERM [Concomitant]
     Route: 065

REACTIONS (1)
  - CEREBROVASCULAR ACCIDENT [None]
